FAERS Safety Report 4822985-1 (Version None)
Quarter: 2005Q4

REPORT INFORMATION
  Report Type: 
  Country: None (occurrence: None)
  Receive Date: 20051107
  Receipt Date: 20051107
  Transmission Date: 20060501
  Serious: Yes (Other)
  Sender: FDA-Public Use
  Company Number: None

PATIENT
  Age: 68 Year
  Sex: Female
  Weight: 63.5036 kg

DRUGS (27)
  1. ZOMETA [Suspect]
     Indication: OSTEOPOROSIS
     Dosage: IV INFUSION 1 X MO. 5 MOS IV DRIP
     Route: 041
     Dates: start: 20020613, end: 20021114
  2. ZOMETA [Suspect]
     Indication: OSTEOPOROSIS
     Dosage: IV INFUSION 1 X MO. 5 MOS IV DRIP
     Route: 041
     Dates: start: 20020613
  3. ZOMETA [Suspect]
     Indication: OSTEOPOROSIS
     Dosage: IV INFUSION 1 X MO. 5 MOS IV DRIP
     Route: 041
     Dates: start: 20020711
  4. ZOMETA [Suspect]
     Indication: OSTEOPOROSIS
     Dosage: IV INFUSION 1 X MO. 5 MOS IV DRIP
     Route: 041
     Dates: start: 20020808
  5. ZOMETA [Suspect]
     Indication: OSTEOPOROSIS
     Dosage: IV INFUSION 1 X MO. 5 MOS IV DRIP
     Route: 041
     Dates: start: 20020912
  6. ZOMETA [Suspect]
     Indication: OSTEOPOROSIS
     Dosage: IV INFUSION 1 X MO. 5 MOS IV DRIP
     Route: 041
     Dates: start: 20021010
  7. ZOMETA [Suspect]
     Indication: OSTEOPOROSIS
     Dosage: IV INFUSION 1 X MO. 5 MOS IV DRIP
     Route: 041
     Dates: start: 20021114
  8. AREDIA [Suspect]
     Indication: OSTEOPOROSIS
     Dosage: IV INFUSION 1 X A MO. 19 MOS IV DRIP
     Route: 041
     Dates: start: 20021212, end: 20040601
  9. AREDIA [Suspect]
     Indication: OSTEOPOROSIS
     Dosage: IV INFUSION 1 X A MO. 19 MOS IV DRIP
     Route: 041
     Dates: start: 20021212
  10. AREDIA [Suspect]
     Indication: OSTEOPOROSIS
     Dosage: IV INFUSION 1 X A MO. 19 MOS IV DRIP
     Route: 041
     Dates: start: 20030109
  11. AREDIA [Suspect]
     Indication: OSTEOPOROSIS
     Dosage: IV INFUSION 1 X A MO. 19 MOS IV DRIP
     Route: 041
     Dates: start: 20030213
  12. AREDIA [Suspect]
     Indication: OSTEOPOROSIS
     Dosage: IV INFUSION 1 X A MO. 19 MOS IV DRIP
     Route: 041
     Dates: start: 20030311
  13. AREDIA [Suspect]
     Indication: OSTEOPOROSIS
     Dosage: IV INFUSION 1 X A MO. 19 MOS IV DRIP
     Route: 041
     Dates: start: 20030313
  14. AREDIA [Suspect]
     Indication: OSTEOPOROSIS
     Dosage: IV INFUSION 1 X A MO. 19 MOS IV DRIP
     Route: 041
     Dates: start: 20030410
  15. AREDIA [Suspect]
     Indication: OSTEOPOROSIS
     Dosage: IV INFUSION 1 X A MO. 19 MOS IV DRIP
     Route: 041
     Dates: start: 20030508
  16. AREDIA [Suspect]
     Indication: OSTEOPOROSIS
     Dosage: IV INFUSION 1 X A MO. 19 MOS IV DRIP
     Route: 041
     Dates: start: 20030612
  17. AREDIA [Suspect]
     Indication: OSTEOPOROSIS
     Dosage: IV INFUSION 1 X A MO. 19 MOS IV DRIP
     Route: 041
     Dates: start: 20030711
  18. AREDIA [Suspect]
     Indication: OSTEOPOROSIS
     Dosage: IV INFUSION 1 X A MO. 19 MOS IV DRIP
     Route: 041
     Dates: start: 20030814
  19. AREDIA [Suspect]
     Indication: OSTEOPOROSIS
     Dosage: IV INFUSION 1 X A MO. 19 MOS IV DRIP
     Route: 041
     Dates: start: 20030911
  20. AREDIA [Suspect]
     Indication: OSTEOPOROSIS
     Dosage: IV INFUSION 1 X A MO. 19 MOS IV DRIP
     Route: 041
     Dates: start: 20031009
  21. AREDIA [Suspect]
     Indication: OSTEOPOROSIS
     Dosage: IV INFUSION 1 X A MO. 19 MOS IV DRIP
     Route: 041
     Dates: start: 20031113
  22. AREDIA [Suspect]
     Indication: OSTEOPOROSIS
     Dosage: IV INFUSION 1 X A MO. 19 MOS IV DRIP
     Route: 041
     Dates: start: 20031211
  23. AREDIA [Suspect]
     Indication: OSTEOPOROSIS
     Dosage: IV INFUSION 1 X A MO. 19 MOS IV DRIP
     Route: 041
     Dates: start: 20040106
  24. AREDIA [Suspect]
     Indication: OSTEOPOROSIS
     Dosage: IV INFUSION 1 X A MO. 19 MOS IV DRIP
     Route: 041
     Dates: start: 20040212
  25. AREDIA [Suspect]
     Indication: OSTEOPOROSIS
     Dosage: IV INFUSION 1 X A MO. 19 MOS IV DRIP
     Route: 041
     Dates: start: 20040408
  26. AREDIA [Suspect]
     Indication: OSTEOPOROSIS
     Dosage: IV INFUSION 1 X A MO. 19 MOS IV DRIP
     Route: 041
     Dates: start: 20040513
  27. AREDIA [Suspect]
     Indication: OSTEOPOROSIS
     Dosage: IV INFUSION 1 X A MO. 19 MOS IV DRIP
     Route: 041
     Dates: start: 20040610

REACTIONS (2)
  - OSTEONECROSIS [None]
  - TOOTH EXTRACTION [None]
